FAERS Safety Report 6334291-7 (Version None)
Quarter: 2009Q3

REPORT INFORMATION
  Report Type: 
  Country: None (occurrence: None)
  Receive Date: 20090829
  Receipt Date: 20090812
  Transmission Date: 20100115
  Serious: No
  Sender: FDA-Public Use
  Company Number: US-ABBOTT-09P-163-0590916-00

PATIENT
  Sex: Female
  Weight: 28.602 kg

DRUGS (9)
  1. SIMCOR [Suspect]
     Indication: BLOOD TRIGLYCERIDES INCREASED
     Dosage: 500/20MG QHS
     Route: 048
     Dates: start: 20090701
  2. FEMARA [Concomitant]
     Indication: DRUG USE FOR UNKNOWN INDICATION
  3. KLOR-CON [Concomitant]
     Indication: DRUG USE FOR UNKNOWN INDICATION
     Dosage: 20 EVERY DAY
     Route: 048
  4. DICLOFENAC [Concomitant]
     Indication: DRUG USE FOR UNKNOWN INDICATION
     Route: 048
  5. CALCIUM +D [Concomitant]
     Indication: DRUG USE FOR UNKNOWN INDICATION
  6. GLUCOSAMINE + CHONDROITIN [Concomitant]
     Indication: DRUG USE FOR UNKNOWN INDICATION
  7. ASPIRIN [Concomitant]
     Indication: PROPHYLAXIS
     Dosage: 81MG EVERY MORNING
     Route: 048
  8. ASPIRIN [Concomitant]
     Dosage: QHS IF IBUPROFEN NOT TAKEN
  9. IBUPROFEN [Concomitant]
     Indication: PROPHYLAXIS
     Dosage: QHS IF ASA NOT TAKEN

REACTIONS (2)
  - BURNING SENSATION [None]
  - FLUSHING [None]
